FAERS Safety Report 4993325-2 (Version None)
Quarter: 2006Q2

REPORT INFORMATION
  Report Type: 
  Country: None (occurrence: None)
  Receive Date: 20060505
  Receipt Date: 20060427
  Transmission Date: 20061013
  Serious: Yes (Hospitalization)
  Sender: FDA-Public Use
  Company Number: 2006CG00756

PATIENT
  Age: 35 Year
  Sex: Female
  Weight: 57 kg

DRUGS (7)
  1. PULMICORT [Suspect]
     Indication: ASTHMA
     Route: 055
     Dates: start: 20060224
  2. SERETIDE [Concomitant]
     Indication: ASTHMA
     Route: 055
     Dates: end: 20060224
  3. VIDEX [Concomitant]
     Indication: HIV INFECTION
     Route: 048
     Dates: start: 20040713
  4. SALBUTAMOL [Concomitant]
     Indication: ASTHMA
     Route: 055
  5. KALETRA [Concomitant]
     Indication: HIV INFECTION
     Route: 048
     Dates: start: 20040713
  6. TRIZIVIR [Concomitant]
     Indication: HIV INFECTION
     Route: 048
     Dates: start: 20040713
  7. BACTRIM [Concomitant]
     Route: 048
     Dates: start: 20040405

REACTIONS (3)
  - CUSHING'S SYNDROME [None]
  - HOT FLUSH [None]
  - SWELLING [None]
